FAERS Safety Report 6583793-7 (Version None)
Quarter: 2010Q1

REPORT INFORMATION
  Report Type: 
  Country: None (occurrence: None)
  Receive Date: 20100216
  Receipt Date: 20091120
  Transmission Date: 20100710
  Serious: No
  Sender: FDA-Public Use
  Company Number: US-ABBOTT-09P-163-0609914-00

PATIENT
  Sex: Female
  Weight: 70.824 kg

DRUGS (3)
  1. SIMCOR [Suspect]
     Indication: BLOOD CHOLESTEROL INCREASED
     Dosage: 1000/20
     Dates: start: 20090501
  2. SIMCOR [Suspect]
     Indication: BLOOD TRIGLYCERIDES INCREASED
  3. SOMETHING FOR HEARTBURN [Concomitant]
     Indication: DYSPEPSIA

REACTIONS (1)
  - FLUSHING [None]
